FAERS Safety Report 5127731-2 (Version None)
Quarter: 2006Q4

REPORT INFORMATION
  Report Type: 
  Country: None (occurrence: None)
  Receive Date: 20061016
  Receipt Date: 20061011
  Transmission Date: 20070319
  Serious: Yes (Other)
  Sender: FDA-Public Use
  Company Number: ZA-GLAXOSMITHKLINE-B0442006A

PATIENT
  Age: 9 Year
  Sex: Male
  Weight: 28 kg

DRUGS (3)
  1. SERETIDE [Suspect]
     Indication: ASTHMA
     Route: 055
     Dates: start: 20020604
  2. SINGULAIR [Concomitant]
     Indication: ASTHMA
     Dosage: 5MG IN THE MORNING
     Route: 048
     Dates: start: 20020911
  3. NASONEX [Concomitant]
     Dosage: 100MG PER DAY
     Dates: start: 20020101

REACTIONS (4)
  - CONFUSIONAL STATE [None]
  - CONVULSION [None]
  - SLEEP DISORDER [None]
  - SOMNOLENCE [None]
